FAERS Safety Report 14395003 (Version 1)
Quarter: 2018Q1

REPORT INFORMATION
  Report Type: Report from Study
  Country: MX (occurrence: MX)
  Receive Date: 20180116
  Receipt Date: 20180116
  Transmission Date: 20180509
  Serious: Yes (Hospitalization, Other)
  Sender: FDA-Public Use
  Company Number: MX-SHIRE-MX201800409

PATIENT

DRUGS (1)
  1. ELAPRASE [Suspect]
     Active Substance: IDURSULFASE
     Indication: MUCOPOLYSACCHARIDOSIS II
     Dosage: 3 VIALS, 1X/WEEK
     Route: 042
     Dates: start: 20130601

REACTIONS (3)
  - Urticaria [Unknown]
  - Pallor [Unknown]
  - Seizure [Unknown]

NARRATIVE: CASE EVENT DATE: 20171229
